FAERS Safety Report 24183636 (Version 1)
Quarter: 2024Q3

REPORT INFORMATION
  Report Type: Report from Study
  Country: MX (occurrence: MX)
  Receive Date: 20240807
  Receipt Date: 20240807
  Transmission Date: 20241016
  Serious: Yes (Hospitalization)
  Sender: BIOVITRUM
  Company Number: MX-AstraZeneca-2023A239294

PATIENT
  Age: 152 Day
  Sex: Female

DRUGS (2)
  1. SYNAGIS [Suspect]
     Active Substance: PALIVIZUMAB
     Indication: Antiviral prophylaxis
     Dosage: 100 MG/1 ML
     Route: 030
     Dates: start: 20230228, end: 20230228
  2. SYNAGIS [Suspect]
     Active Substance: PALIVIZUMAB
     Indication: Premature baby
     Dosage: 1ML, FREQUENCY: MONTHLY
     Route: 030
     Dates: start: 20230920, end: 20230920

REACTIONS (1)
  - Illness [Unknown]

NARRATIVE: CASE EVENT DATE: 20230228
